FAERS Safety Report 5355252-0 (Version None)
Quarter: 2007Q2

REPORT INFORMATION
  Report Type: 
  Country: None (occurrence: None)
  Receive Date: 20070613
  Receipt Date: 20070504
  Transmission Date: 20071010
  Serious: Yes (Hospitalization)
  Sender: FDA-Public Use
  Company Number: PHBS2007AT09471

PATIENT
  Age: 51 Year
  Sex: Male

DRUGS (3)
  1. VOLTAREN [Suspect]
  2. ACETYLSALICYLIC ACID SRT [Suspect]
  3. DIPYRIDAMOLE [Suspect]

REACTIONS (6)
  - ACUTE RESPIRATORY DISTRESS SYNDROME [None]
  - ASPIRATION TRACHEAL [None]
  - INTENTIONAL OVERDOSE [None]
  - MENDELSON'S SYNDROME [None]
  - RHABDOMYOLYSIS [None]
  - SUICIDE ATTEMPT [None]
